FAERS Safety Report 6549186-3 (Version None)
Quarter: 2010Q1

REPORT INFORMATION
  Report Type: 
  Country: None (occurrence: None)
  Receive Date: 20100119
  Receipt Date: 20100104
  Transmission Date: 20100710
  Serious: Yes (Hospitalization)
  Sender: FDA-Public Use
  Company Number: 2009AC000445

PATIENT
  Age: 64 Year
  Sex: Female

DRUGS (11)
  1. DIGOXIN [Suspect]
     Dosage: PO
     Route: 048
     Dates: start: 19950101
  2. LORTAB [Concomitant]
  3. ALBUTEROL [Concomitant]
  4. LIPITOR [Concomitant]
  5. ATACAND/HCTZ [Concomitant]
  6. COREG [Concomitant]
  7. FELODIPINE [Concomitant]
  8. CHANTIX [Concomitant]
  9. COUMADIN [Concomitant]
  10. PERCOCET [Concomitant]
  11. PLENDIL [Concomitant]

REACTIONS (12)
  - ACTIVATED PARTIAL THROMBOPLASTIN TIME PROLONGED [None]
  - ASTHENIA [None]
  - COLON CANCER [None]
  - ECONOMIC PROBLEM [None]
  - FATIGUE [None]
  - HEADACHE [None]
  - HYPOTENSION [None]
  - MULTIPLE INJURIES [None]
  - PERIPHERAL ARTERIAL OCCLUSIVE DISEASE [None]
  - PROTHROMBIN TIME PROLONGED [None]
  - SURGERY [None]
  - UNEVALUABLE EVENT [None]
